FAERS Safety Report 6933922-8 (Version None)
Quarter: 2010Q3

REPORT INFORMATION
  Report Type: 
  Country: None (occurrence: None)
  Receive Date: 20100820
  Receipt Date: 20100813
  Transmission Date: 20110219
  Serious: Yes (Other)
  Sender: FDA-Public Use
  Company Number: US-ALLERGAN-0901466US

PATIENT
  Age: 71 Year
  Sex: Female
  Weight: 62.132 kg

DRUGS (11)
  1. ALPHAGAN [Suspect]
     Indication: GLAUCOMA
     Route: 047
  2. LUMIGAN [Suspect]
     Indication: PRODUCT USED FOR UNKNOWN INDICATION
  3. XALATAN [Suspect]
     Indication: GLAUCOMA
     Dosage: 1 GTT, QD
     Route: 047
  4. XALATAN [Suspect]
     Indication: INTRAOCULAR PRESSURE TEST
  5. COSOPT [Suspect]
     Indication: GLAUCOMA
     Route: 047
  6. COSOPT [Suspect]
     Indication: INTRAOCULAR PRESSURE TEST
  7. DIAMOX SRC [Suspect]
     Indication: INTRAOCULAR PRESSURE TEST
  8. LORAZEPAM [Concomitant]
  9. CLONAZEPAM [Concomitant]
     Dosage: UNK, PRN
  10. MIRTAZAPINE [Concomitant]
     Dosage: UNK, QHS
  11. CITALOPRAM HYDROBROMIDE [Concomitant]

REACTIONS (6)
  - ADVERSE DRUG REACTION [None]
  - DRUG INEFFECTIVE [None]
  - INTRAOCULAR PRESSURE FLUCTUATION [None]
  - INTRAOCULAR PRESSURE INCREASED [None]
  - LEUKAEMIA [None]
  - THYROID CANCER [None]
